FAERS Safety Report 7358865-X (Version None)
Quarter: 2011Q1

REPORT INFORMATION
  Report Type: 
  Country: None (occurrence: None)
  Receive Date: 20110317
  Receipt Date: 20110308
  Transmission Date: 20110831
  Serious: Yes (Death)
  Sender: FDA-Public Use
  Company Number: B0706119A

PATIENT
  Age: 28 Year
  Sex: Female
  Weight: 85.5 kg

DRUGS (7)
  1. IBUPROFEN [Concomitant]
     Dates: start: 20090522
  2. LOPERAMIDE [Concomitant]
  3. VALIUM [Concomitant]
     Dates: start: 20100802
  4. ISENTRESS [Suspect]
     Indication: HIV INFECTION
     Dosage: 400MG TWICE PER DAY
     Route: 048
     Dates: start: 20090921
  5. MARAVIROC [Suspect]
     Indication: HIV INFECTION
     Dosage: 300MG TWICE PER DAY
     Route: 048
     Dates: start: 20090921
  6. DEPAKOTE [Concomitant]
     Dates: start: 20100802
  7. TRUVADA [Suspect]
     Indication: HIV INFECTION
     Dosage: 1TAB PER DAY
     Route: 048
     Dates: start: 20090921

REACTIONS (1)
  - DEATH [None]
